FAERS Safety Report 8211219-6 (Version None)
Quarter: 2012Q1

REPORT INFORMATION
  Report Type: 
  Country: None (occurrence: None)
  Receive Date: 20120315
  Receipt Date: 20120307
  Transmission Date: 20120608
  Serious: Yes (Death)
  Sender: FDA-Public Use
  Company Number: JP-UCBSA-052820

PATIENT
  Age: 80 Year
  Sex: Male
  Weight: 60 kg

DRUGS (1)
  1. KEPPRA [Suspect]
     Indication: SIMPLE PARTIAL SEIZURES
     Dosage: AFTER MEAL
     Route: 048
     Dates: start: 20111028, end: 20111107

REACTIONS (1)
  - DEATH [None]
